FAERS Safety Report 24100337 (Version 1)
Quarter: 2024Q3

REPORT INFORMATION
  Report Type: Report from Study
  Country: US (occurrence: US)
  Receive Date: 20240717
  Receipt Date: 20240717
  Transmission Date: 20241016
  Serious: Yes (Hospitalization, Other)
  Sender: ROCHE
  Company Number: US-ROCHE-2347760

PATIENT
  Age: 56 Year
  Sex: Male
  Weight: 77.11 kg

DRUGS (8)
  1. OCREVUS [Suspect]
     Active Substance: OCRELIZUMAB
     Indication: Primary progressive multiple sclerosis
     Dosage: DATE OF TREATMENT: 30/MAY/2018
     Route: 042
     Dates: start: 2018
  2. OCREVUS [Suspect]
     Active Substance: OCRELIZUMAB
     Indication: Relapsing multiple sclerosis
     Route: 065
  3. OCREVUS [Suspect]
     Active Substance: OCRELIZUMAB
     Indication: Multiple sclerosis
  4. RITUXAN [Suspect]
     Active Substance: RITUXIMAB
     Indication: Multiple sclerosis
     Dosage: ONGOING:NO
     Route: 065
     Dates: start: 2016
  5. GABAPENTIN [Concomitant]
     Active Substance: GABAPENTIN
     Dosage: ONGOING:YES
  6. PREDNISONE [Concomitant]
     Active Substance: PREDNISONE
     Dosage: TREATMENT FOR FIRST 5 DAYS OF EVERY MONTH ;ONGOING: YES
  7. NORTRIPTYLINE [Concomitant]
     Active Substance: NORTRIPTYLINE
  8. SENOKOT [Concomitant]
     Active Substance: SENNOSIDES

REACTIONS (6)
  - Mass [Recovered/Resolved]
  - Pyrexia [Recovered/Resolved]
  - Urinary retention [Unknown]
  - COVID-19 [Recovered/Resolved]
  - Pneumonia [Recovered/Resolved]
  - Urinary tract infection [Unknown]

NARRATIVE: CASE EVENT DATE: 20190601
